FAERS Safety Report 4497082-8 (Version None)
Quarter: 2004Q4

REPORT INFORMATION
  Report Type: 
  Country: None (occurrence: None)
  Receive Date: 20041110
  Receipt Date: 20041102
  Transmission Date: 20050328
  Serious: Yes (Other)
  Sender: FDA-Public Use
  Company Number: US-JNJFOC-20041101117

PATIENT
  Sex: Female

DRUGS (5)
  1. REMICADE [Suspect]
     Indication: ANKYLOSING SPONDYLITIS
     Route: 042
  2. PREDNISONE [Concomitant]
  3. METHOTREXATE [Concomitant]
  4. NSAIDS [Concomitant]
  5. PLAQUENIL [Concomitant]

REACTIONS (2)
  - INFECTION [None]
  - SURGERY [None]
